FAERS Safety Report 4300121-8 (Version None)
Quarter: 2004Q1

REPORT INFORMATION
  Report Type: 
  Country: None (occurrence: None)
  Receive Date: 20040218
  Receipt Date: 20040209
  Transmission Date: 20041129
  Serious: Yes (Hospitalization)
  Sender: FDA-Public Use
  Company Number: EMADSS2001004137

PATIENT
  Age: 81 Year
  Sex: Male

DRUGS (6)
  1. RISPERIDONE [Suspect]
     Indication: DELIRIUM
     Dosage: 1 MG, 1 IN 1 DAY, ORAL
     Route: 048
     Dates: end: 20010410
  2. TERCIAN (CYAMEMAZINE) DROPS [Concomitant]
     Indication: DELIRIUM
     Dosage: 95 GTT
  3. ARICEPT [Concomitant]
  4. FOLIC ACID [Concomitant]
  5. FERROUS SULFATE TAB [Concomitant]
  6. OXAZEPAM [Suspect]
     Indication: DELIRIUM
     Dosage: 50 MG, UNKNOWN

REACTIONS (3)
  - BRONCHOPNEUMONIA [None]
  - FALL [None]
  - PYREXIA [None]
